FAERS Safety Report 8010329-6 (Version None)
Quarter: 2011Q4

REPORT INFORMATION
  Report Type: 
  Country: None (occurrence: None)
  Receive Date: 20111228
  Receipt Date: 20111215
  Transmission Date: 20120403
  Serious: Yes (Hospitalization)
  Sender: FDA-Public Use
  Company Number: US-ELI_LILLY_AND_COMPANY-US201112005640

PATIENT
  Sex: Female

DRUGS (5)
  1. FORTEO [Suspect]
     Indication: OSTEOPOROSIS
     Dosage: 20 UG, QD
     Route: 065
     Dates: start: 20101017
  2. CYMBALTA [Concomitant]
     Indication: DEPRESSION
     Dosage: 60 MG, QD
  3. PANTOPRAZOLE [Concomitant]
     Indication: ENDOSCOPY
  4. MELOXICAM [Concomitant]
  5. DEXLANSOPRAZOLE [Concomitant]
     Indication: ENDOSCOPY

REACTIONS (6)
  - HAEMATEMESIS [None]
  - MALAISE [None]
  - COLON NEOPLASM [None]
  - VOCAL CORD NEOPLASM [None]
  - ULCER HAEMORRHAGE [None]
  - ANAEMIA [None]
